FAERS Safety Report 5913660-0 (Version None)
Quarter: 2008Q4

REPORT INFORMATION
  Report Type: 
  Country: None (occurrence: None)
  Receive Date: 20081009
  Receipt Date: 20080929
  Transmission Date: 20090506
  Serious: Yes (Hospitalization)
  Sender: FDA-Public Use
  Company Number: BR-ABBOTT-08P-020-0478792-00

PATIENT
  Sex: Male

DRUGS (4)
  1. VALPAKINE [Suspect]
     Indication: CONVULSION
     Route: 048
     Dates: start: 20021204, end: 20080828
  2. VALPAKINE [Suspect]
     Route: 048
     Dates: start: 20080829
  3. BACLOFEN [Concomitant]
     Indication: MUSCLE RELAXANT THERAPY
     Route: 048
  4. OMEPRAZOLE [Concomitant]
     Indication: GASTRIC DISORDER
     Route: 048

REACTIONS (7)
  - AFFECTIVE DISORDER [None]
  - DECREASED APPETITE [None]
  - ERYTHEMA [None]
  - INSOMNIA [None]
  - PALLOR [None]
  - SOCIAL AVOIDANT BEHAVIOUR [None]
  - SOMNOLENCE [None]
